FAERS Safety Report 9297794 (Version 4)
Quarter: 2013Q3

REPORT INFORMATION
  Report Type: Spontaneous
  Country: US (occurrence: None)
  Receive Date: 20130515
  Receipt Date: 20130916
  Transmission Date: 20140515
  Serious: Yes (Other)
  Sender: FDA-Public Use
  Company Number: JPI-P-031655

PATIENT
  Age: 38 Year
  Sex: Female
  Weight: 64.14 kg

DRUGS (4)
  1. XYREM [Suspect]
     Indication: NARCOLEPSY
     Dosage: 4.5 GM (2.25 GM, 2 IN 1 D), ORAL
     Route: 048
     Dates: start: 20100219
  2. METHYLPHENIDATE (TABLETS) [Concomitant]
  3. FLUOXETINE [Concomitant]
  4. METHYLPHENIDATE [Concomitant]

REACTIONS (16)
  - Somnolence [None]
  - Amnesia [None]
  - Nightmare [None]
  - Hallucination [None]
  - Sleep paralysis [None]
  - Fatigue [None]
  - Cataplexy [None]
  - Restlessness [None]
  - Weight increased [None]
  - Sleep apnoea syndrome [None]
  - Depression [None]
  - Sleep talking [None]
  - Hypersomnia [None]
  - Restlessness [None]
  - Middle insomnia [None]
  - Insomnia [None]
